FAERS Safety Report 7953922-9 (Version None)
Quarter: 2011Q4

REPORT INFORMATION
  Report Type: 
  Country: None (occurrence: None)
  Receive Date: 20111129
  Receipt Date: 20111114
  Transmission Date: 20120403
  Serious: Yes (Other)
  Sender: FDA-Public Use
  Company Number: 2011SP053586

PATIENT
  Sex: Female

DRUGS (3)
  1. TELAPREVIR [Suspect]
     Indication: HEPATITIS C
     Dates: start: 20111031
  2. PEG-INTRON [Suspect]
     Indication: HEPATITIS C
     Dates: start: 20111031
  3. RIBAVIRIN [Suspect]
     Indication: HEPATITIS C
     Dates: start: 20111031

REACTIONS (9)
  - NAUSEA [None]
  - GLOSSODYNIA [None]
  - DYSGEUSIA [None]
  - SWOLLEN TONGUE [None]
  - STOMATITIS [None]
  - RASH [None]
  - TONGUE DISORDER [None]
  - DRY MOUTH [None]
  - ORAL PAIN [None]
